FAERS Safety Report 19140168 (Version 1)
Quarter: 2021Q2

REPORT INFORMATION
  Report Type: Spontaneous
  Country: US (occurrence: US)
  Receive Date: 20210415
  Receipt Date: 20210415
  Transmission Date: 20210717
  Serious: No
  Sender: FDA-Public Use
  Company Number: US-GW PHARMA-202104USGW01562

PATIENT

DRUGS (1)
  1. EPIDIOLEX [Suspect]
     Active Substance: CANNABIDIOL
     Indication: EPILEPSY
     Dosage: 280 MILLIGRAM, BID
     Route: 048
     Dates: start: 20190222

REACTIONS (4)
  - Cognitive disorder [Unknown]
  - Slow speech [Unknown]
  - Hyporeflexia [Unknown]
  - Speech disorder [Unknown]
